FAERS Safety Report 9768527 (Version 6)
Quarter: 2014Q3

REPORT INFORMATION
  Report Type: Spontaneous
  Country: US (occurrence: US)
  Receive Date: 20131217
  Receipt Date: 20140904
  Transmission Date: 20150326
  Serious: Yes (Hospitalization, Other)
  Sender: FDA-Public Use
  Company Number: US-JNJFOC-20131207554

PATIENT
  Age: 41 Year
  Sex: Female
  Weight: 92 kg

DRUGS (2)
  1. TYLENOL EXTRA STRENGTH [Suspect]
     Active Substance: ACETAMINOPHEN
     Indication: PAIN IN EXTREMITY
     Dosage: THE PATIENT WAS TAKING 12 EXTRA STRENGTH??TYLENOL A DAY FOR A YEAR (6G)
     Route: 048
     Dates: start: 20101227, end: 20110106
  2. TYLENOL EXTRA STRENGTH [Suspect]
     Active Substance: ACETAMINOPHEN
     Indication: NEUROPATHY PERIPHERAL
     Dosage: THE PATIENT WAS TAKING 12 EXTRA STRENGTH??TYLENOL A DAY FOR A YEAR (6G)
     Route: 048
     Dates: start: 20101227, end: 20110106

REACTIONS (4)
  - Acute hepatic failure [Unknown]
  - Hepatitis acute [Unknown]
  - Toxicity to various agents [Unknown]
  - Overdose [Unknown]

NARRATIVE: CASE EVENT DATE: 20110106
